FAERS Safety Report 24779373 (Version 3)
Quarter: 2025Q2

REPORT INFORMATION
  Report Type: Report from Study
  Country: US (occurrence: US)
  Receive Date: 20241226
  Receipt Date: 20250402
  Transmission Date: 20250716
  Serious: Yes (Hospitalization, Other)
  Sender: ABBVIE
  Company Number: US-ABBVIE-6062818

PATIENT
  Age: 70 Year
  Sex: Female

DRUGS (1)
  1. SKYRIZI [Suspect]
     Active Substance: RISANKIZUMAB-RZAA
     Indication: Crohn^s disease
     Route: 042
     Dates: start: 20241018

REACTIONS (2)
  - Paronychia [Recovering/Resolving]
  - Poor peripheral circulation [Recovering/Resolving]

NARRATIVE: CASE EVENT DATE: 20241101
